FAERS Safety Report 20070708 (Version 1)
Quarter: 2021Q4

REPORT INFORMATION
  Report Type: Spontaneous
  Country: US (occurrence: None)
  Receive Date: 20211115
  Receipt Date: 20211115
  Transmission Date: 20220303
  Serious: No
  Sender: FDA-Public Use
  Company Number: None

PATIENT
  Age: 35 Year
  Sex: Female
  Weight: 57.9 kg

DRUGS (5)
  1. INJECTAFER [Suspect]
     Active Substance: FERRIC CARBOXYMALTOSE
     Indication: Anaemia
     Dosage: OTHER FREQUENCY : ONE TIME INFUSION;?
     Route: 044
     Dates: start: 20211112, end: 20211112
  2. INJECTAFER [Suspect]
     Active Substance: FERRIC CARBOXYMALTOSE
     Indication: Iron deficiency anaemia
  3. INJECTAFER [Suspect]
     Active Substance: FERRIC CARBOXYMALTOSE
     Indication: Iron deficiency anaemia
  4. diphenhydramine 25mg IV [Concomitant]
     Dates: start: 20211112, end: 20211112
  5. EpiPen 0.3 mg [Concomitant]
     Dates: start: 20211112, end: 20211112

REACTIONS (2)
  - Chest discomfort [None]
  - Unresponsive to stimuli [None]

NARRATIVE: CASE EVENT DATE: 20211112
